FAERS Safety Report 5005384-1 (Version None)
Quarter: 2006Q2

REPORT INFORMATION
  Report Type: 
  Country: None (occurrence: None)
  Receive Date: 20060518
  Receipt Date: 20060413
  Transmission Date: 20061013
  Serious: Yes (Disabling)
  Sender: FDA-Public Use
  Company Number: JP-MERCK-0605USA02237

PATIENT
  Age: 83 Year
  Sex: Female
  Weight: 44 kg

DRUGS (1)
  1. FOSAMAX [Suspect]
     Indication: OSTEOPOROSIS
     Route: 048
     Dates: start: 20050101, end: 20060403

REACTIONS (2)
  - BONE DISORDER [None]
  - JAW DISORDER [None]
